FAERS Safety Report 15401770 (Version 6)
Quarter: 2018Q4

REPORT INFORMATION
  Report Type: Report from Study
  Country: US (occurrence: US)
  Receive Date: 20180919
  Receipt Date: 20181113
  Transmission Date: 20190204
  Serious: Yes (Death, Life-Threatening, Hospitalization)
  Sender: FDA-Public Use
  Company Number: PHHO2018US010332

PATIENT
  Age: 9 Year
  Sex: Male
  Weight: 46.7 kg

DRUGS (3)
  1. FENTANYL. [Suspect]
     Active Substance: FENTANYL
     Indication: PRODUCT USED FOR UNKNOWN INDICATION
     Route: 065
  2. FARYDAK [Suspect]
     Active Substance: PANOBINOSTAT
     Indication: BRAIN STEM GLIOMA
     Dosage: 28 MG/M2, UNK
     Route: 048
     Dates: start: 20180806, end: 20180824
  3. AMOXICILLIN. [Suspect]
     Active Substance: AMOXICILLIN
     Indication: PRODUCT USED FOR UNKNOWN INDICATION
     Dosage: UNK
     Route: 065
     Dates: start: 20180901, end: 20180901

REACTIONS (2)
  - Respiratory distress [Fatal]
  - Upper airway obstruction [Fatal]

NARRATIVE: CASE EVENT DATE: 20180902
